FAERS Safety Report 18000488 (Version 7)
Quarter: 2022Q1

REPORT INFORMATION
  Report Type: Spontaneous
  Country: US (occurrence: US)
  Receive Date: 20200709
  Receipt Date: 20220307
  Transmission Date: 20220423
  Serious: No
  Sender: FDA-Public Use
  Company Number: US-PFIZER INC-2020259548

PATIENT
  Age: 7 Year
  Sex: Female
  Weight: 25.079 kg

DRUGS (1)
  1. GENOTROPIN [Suspect]
     Active Substance: SOMATROPIN
     Indication: Growth hormone deficiency
     Dosage: 0.8 MG, 1X/DAY (AT NIGHT BEFORE BEDTIME)

REACTIONS (2)
  - Wrong technique in device usage process [Unknown]
  - Weight increased [Unknown]
